FAERS Safety Report 10891332 (Version 2)
Quarter: 2015Q2

REPORT INFORMATION
  Report Type: Spontaneous
  Country: BR (occurrence: BR)
  Receive Date: 20150306
  Receipt Date: 20150521
  Transmission Date: 20150821
  Serious: Yes (Other)
  Sender: FDA-Public Use
  Company Number: BR-PFIZER INC-2015074940

PATIENT
  Age: 74 Year
  Sex: Female
  Weight: 68 kg

DRUGS (4)
  1. LIVOLON [Concomitant]
     Active Substance: TIBOLONE
     Indication: CARDIOVASCULAR DISORDER
     Dosage: 6.25 MG (1 TABLET), 2X/DAY (IN THE MORNING AND AT NIGHT)
  2. CRESTOR [Concomitant]
     Active Substance: ROSUVASTATIN CALCIUM
     Indication: BLOOD CHOLESTEROL ABNORMAL
     Dosage: 10 MG (1 TABLET), 1X/DAY (AT NIGHT)
     Dates: start: 2005
  3. XALATAN [Suspect]
     Active Substance: LATANOPROST
     Indication: INTRAOCULAR PRESSURE INCREASED
     Dosage: 1 DROP IN LEFT EYE (1.5 UG), 1X/DAY
     Route: 047
     Dates: start: 20110831
  4. BENICAR HCT [Concomitant]
     Active Substance: HYDROCHLOROTHIAZIDE\OLMESARTAN MEDOXOMIL
     Indication: BLOOD PRESSURE ABNORMAL
     Dosage: 1 TABLET [20/12 MG], 1X/DAY (IN THE MORNING)

REACTIONS (4)
  - Malaise [Recovered/Resolved]
  - Eye pain [Recovered/Resolved]
  - Diabetes mellitus [Recovered/Resolved]
  - Angiopathy [Recovered/Resolved]

NARRATIVE: CASE EVENT DATE: 2012
